FAERS Safety Report 17110022 (Version 4)
Quarter: 2020Q1

REPORT INFORMATION
  Report Type: Spontaneous
  Country: JP (occurrence: JP)
  Receive Date: 20191204
  Receipt Date: 20200211
  Transmission Date: 20200409
  Serious: Yes (Hospitalization)
  Sender: FDA-Public Use
  Company Number: JP-009507513-1912JPN000556

PATIENT
  Age: 80 Year
  Sex: Female

DRUGS (1)
  1. BONALON [Suspect]
     Active Substance: ALENDRONATE SODIUM
     Indication: OSTEOPOROSIS
     Dosage: 900 MICROGRAM, EVERY 4 WEEKS
     Route: 041
     Dates: end: 201611

REACTIONS (2)
  - Ulna fracture [Unknown]
  - Ulna fracture [Recovered/Resolved]

NARRATIVE: CASE EVENT DATE: 201611
